FAERS Safety Report 20048191 (Version 4)
Quarter: 2022Q4

REPORT INFORMATION
  Report Type: Report from Study
  Country: US (occurrence: None)
  Receive Date: 20211109
  Receipt Date: 20221021
  Transmission Date: 20230113
  Serious: Yes (Other)
  Sender: FDA-Public Use
  Company Number: US-Merck KGaA-E2B_90030295

PATIENT
  Age: 40 Year
  Sex: Female

DRUGS (1)
  1. REBIF [Suspect]
     Active Substance: INTERFERON BETA-1A
     Indication: Multiple sclerosis
     Route: 058
     Dates: start: 20150608

REACTIONS (8)
  - Muscle spasticity [Unknown]
  - Spinal pain [Unknown]
  - Fall [Unknown]
  - Muscle spasms [Recovering/Resolving]
  - Hypoaesthesia [Unknown]
  - Gait disturbance [Unknown]
  - Back pain [Unknown]
  - Mobility decreased [Unknown]

NARRATIVE: CASE EVENT DATE: 20180228
